FAERS Safety Report 5485378-2 (Version None)
Quarter: 2007Q4

REPORT INFORMATION
  Report Type: 
  Country: None (occurrence: None)
  Receive Date: 20071015
  Receipt Date: 20071009
  Transmission Date: 20080405
  Serious: Yes (Hospitalization)
  Sender: FDA-Public Use
  Company Number: ES-WYE-H00569907

PATIENT
  Age: 90 Year
  Sex: Female

DRUGS (1)
  1. SUMIAL [Suspect]
     Route: 048
     Dates: end: 20070507

REACTIONS (2)
  - ATRIOVENTRICULAR BLOCK COMPLETE [None]
  - BRADYCARDIA [None]
